FAERS Safety Report 10329520 (Version 1)
Quarter: 2014Q3

REPORT INFORMATION
  Report Type: Spontaneous
  Country: GB (occurrence: None)
  Receive Date: 20140717
  Receipt Date: 20140717
  Transmission Date: 20150326
  Serious: Yes (Other)
  Sender: FDA-Public Use
  Company Number: SYM-2014-22996

PATIENT
  Age: 50 Year
  Sex: Male

DRUGS (13)
  1. METRONIDAZOLE (METRONIDAZOLE) [Suspect]
     Active Substance: METRONIDAZOLE
     Indication: PRODUCT USED FOR UNKNOWN INDICATION
     Dates: start: 20140620
  2. CETIRIZINE HYDROCHLORIDE (CETIRIZINE HYDROCHLORIDE) [Concomitant]
  3. DIPROBASE CREAM (DIPROBASE) (CETOSTEARYL ALCOHOL, PARAFFIN, LIQUID, CETOMACROGOL, WHITE SOFT PARAFFIN) [Concomitant]
  4. PIROXICAM (PIROXICAM) [Concomitant]
  5. LANSOPRAZOLE (LANSOPRAZOLE) [Concomitant]
     Active Substance: LANSOPRAZOLE
  6. SALBUTAMOL (SALBUTAMOL) [Concomitant]
     Active Substance: ALBUTEROL
  7. TIOTROPIUM (TIOTROPIUM) (TIOTROPIUM) [Concomitant]
     Active Substance: TIOTROPIUM
  8. WARFARIN SODIUM (WARFARIN SODIUM) [Concomitant]
     Active Substance: WARFARIN SODIUM
  9. LISINOPRIL (LISINOPRIL) [Concomitant]
     Active Substance: LISINOPRIL
  10. METFORMIN [Concomitant]
     Active Substance: METFORMIN HYDROCHLORIDE
  11. SERETIDE (SERETIDE) (FLUTICASONE PROPIONATE, SALMETEROL XINAFOATE) [Concomitant]
  12. CALCIUM CARBONATE (CALCIUM CARBONATE) (CALCIUM CARBONATE) [Concomitant]
     Active Substance: CALCIUM CARBONATE
  13. CLOTRIMAZOLE (CLOTRIMAZOLE) [Concomitant]

REACTIONS (2)
  - Rash erythematous [None]
  - Rash generalised [None]

NARRATIVE: CASE EVENT DATE: 20140623
